FAERS Safety Report 5189793-6 (Version None)
Quarter: 2006Q4

REPORT INFORMATION
  Report Type: 
  Country: None (occurrence: None)
  Receive Date: 20061218
  Receipt Date: 20061208
  Transmission Date: 20070319
  Serious: Yes (Other)
  Sender: FDA-Public Use
  Company Number: 060210

PATIENT
  Age: 62 Year
  Sex: Male

DRUGS (8)
  1. HALFLYTELY [Suspect]
     Indication: COLONOSCOPY
     Dosage: 20 MG, 1X, PO
     Route: 048
     Dates: start: 20061120
  2. AVODART [Concomitant]
  3. AVANDAMET [Concomitant]
  4. AMITRIPTYLINE HCL [Concomitant]
  5. LEVOTHROID [Concomitant]
  6. ASPIRIN [Concomitant]
  7. PLAVIX [Concomitant]
  8. DOXYCYCLINE [Concomitant]

REACTIONS (3)
  - COLITIS ISCHAEMIC [None]
  - DIVERTICULUM [None]
  - URINARY RETENTION [None]
